FAERS Safety Report 10069137 (Version 1)
Quarter: 2014Q2

REPORT INFORMATION
  Report Type: Spontaneous
  Country: GB (occurrence: GB)
  Receive Date: 20140409
  Receipt Date: 20140409
  Transmission Date: 20141212
  Serious: Yes (Death)
  Sender: FDA-Public Use
  Company Number: GB-MYLANLABS-2014S1007345

PATIENT
  Age: 40 Year
  Sex: Female
  Weight: 76 kg

DRUGS (9)
  1. MYCOPHENOLATE MOFETIL [Suspect]
     Indication: SYSTEMIC LUPUS ERYTHEMATOSUS
     Route: 048
     Dates: start: 20091020, end: 20131022
  2. ASPIRIN [Concomitant]
  3. CANDESARTAN CILEXETIL [Concomitant]
  4. FERROUS SULPHATE [Concomitant]
  5. FOLIC ACID [Concomitant]
  6. HYDROXOCOBALAMIN [Concomitant]
  7. HYDROXYCHLOROQUINE [Concomitant]
  8. PENICILLIN V /00001801/ [Concomitant]
  9. PREDNISOLONE [Concomitant]

REACTIONS (5)
  - Progressive multifocal leukoencephalopathy [Fatal]
  - Cerebellar syndrome [Not Recovered/Not Resolved]
  - Central nervous system lesion [Not Recovered/Not Resolved]
  - Locked-in syndrome [Not Recovered/Not Resolved]
  - JC virus infection [Not Recovered/Not Resolved]
